FAERS Safety Report 23511121 (Version 1)
Quarter: 2024Q1

REPORT INFORMATION
  Report Type: Spontaneous
  Country: JP (occurrence: JP)
  Receive Date: 20240212
  Receipt Date: 20240212
  Transmission Date: 20240409
  Serious: Yes (Other)
  Sender: FDA-Public Use
  Company Number: JP-CHEPLA-2024001561

PATIENT

DRUGS (1)
  1. VALGANCICLOVIR [Suspect]
     Active Substance: VALGANCICLOVIR
     Indication: Product used for unknown indication
     Route: 048

REACTIONS (6)
  - Cytomegalovirus infection [Recovering/Resolving]
  - Cytomegalovirus viraemia [Recovering/Resolving]
  - Neutropenia [Recovering/Resolving]
  - Hepatic function abnormal [Recovering/Resolving]
  - Pyrexia [Recovering/Resolving]
  - Adverse drug reaction [Unknown]
